FAERS Safety Report 6079615-3 (Version None)
Quarter: 2009Q1

REPORT INFORMATION
  Report Type: 
  Country: None (occurrence: None)
  Receive Date: 20090217
  Receipt Date: 20090211
  Transmission Date: 20090719
  Serious: Yes (Other)
  Sender: FDA-Public Use
  Company Number: US-ASTRAZENECA-2009UW04067

PATIENT
  Sex: Female

DRUGS (3)
  1. NEXIUM [Suspect]
     Route: 048
  2. ATACAND [Concomitant]
     Route: 048
  3. CRESTOR [Concomitant]
     Route: 048

REACTIONS (3)
  - BREAST OPERATION [None]
  - SKIN OPERATION [None]
  - SURGERY [None]
